FAERS Safety Report 14934768 (Version 1)
Quarter: 2018Q2

REPORT INFORMATION
  Report Type: Spontaneous
  Country: DE (occurrence: DE)
  Receive Date: 20180524
  Receipt Date: 20180524
  Transmission Date: 20180711
  Serious: Yes (Hospitalization)
  Sender: FDA-Public Use
  Company Number: DE-009507513-1805DEU008439

PATIENT
  Age: 51 Year
  Sex: Male
  Weight: 77 kg

DRUGS (2)
  1. PEMBROLIZUMAB. [Suspect]
     Active Substance: PEMBROLIZUMAB
     Dosage: SCHEME, SOLUTION FOR INJECTION / INFUSION
     Route: 042
     Dates: start: 201701
  2. RAMIPRIL. [Concomitant]
     Active Substance: RAMIPRIL
     Dosage: 10 MG, 1-0-0-0, TABLET
     Route: 048

REACTIONS (3)
  - Blood glucose increased [Unknown]
  - Thirst [Unknown]
  - Hyperglycaemia [Unknown]
